FAERS Safety Report 9778929 (Version 2)
Quarter: 2014Q1

REPORT INFORMATION
  Report Type: Spontaneous
  Country: US (occurrence: US)
  Receive Date: 20131223
  Receipt Date: 20140130
  Transmission Date: 20141002
  Serious: Yes (Hospitalization)
  Sender: FDA-Public Use
  Company Number: US-B.I. PHARMACEUTICALS,INC./RIDGEFIELD-2013-BI-43423BP

PATIENT
  Age: 89 Year
  Sex: Female

DRUGS (22)
  1. PRADAXA [Suspect]
     Indication: ATRIAL FIBRILLATION
     Dosage: 300 MG
     Dates: start: 20110719, end: 20110905
  2. CARVEDILOL [Concomitant]
     Dosage: 12.5 MG
  3. VALSARTAN [Concomitant]
     Dosage: 160 MG
  4. AMLODIPINE [Concomitant]
     Dosage: 5 MG
  5. GLIPAZIDE [Concomitant]
     Dosage: 2.5 MG
  6. LEVOTHYROXINE [Concomitant]
     Dosage: 88 MCG
  7. FLUTICASONE [Concomitant]
  8. MIRTAZAPINE [Concomitant]
     Dosage: 7.5 MG
  9. LORAZEPAM [Concomitant]
  10. DOCUSATE [Concomitant]
     Dosage: 200 MG
  11. BISACODYL [Concomitant]
  12. MILK OF MAGNESIA [Concomitant]
  13. ACETAMINOPHEN [Concomitant]
     Dosage: 3000 MG
  14. SODIUM CHLORIDE [Concomitant]
     Dosage: 2 G
  15. CALCIUM CARBONATE [Concomitant]
     Dosage: 1500 MG
  16. VITAMIN D [Concomitant]
     Dosage: 1000 U
  17. VITAMIN C [Concomitant]
     Dosage: 1000 MG
  18. MAG OXIDE [Concomitant]
     Dosage: 400 MG
  19. MULTIVITAMIN [Concomitant]
  20. POTASSIUM [Concomitant]
     Dosage: 10 MEQ
  21. FERROUS SULFATE [Concomitant]
     Dosage: 325 MG
  22. RANITIDINE [Concomitant]
     Dosage: 150 MG

REACTIONS (1)
  - Ischaemic stroke [Unknown]
